FAERS Safety Report 15507829 (Version 1)
Quarter: 2018Q4

REPORT INFORMATION
  Report Type: Report from Study
  Country: AU (occurrence: AU)
  Receive Date: 20181016
  Receipt Date: 20181016
  Transmission Date: 20190205
  Serious: Yes (Other)
  Sender: FDA-Public Use
  Company Number: AU-GILEAD-2018-0367495

PATIENT
  Age: 54 Year
  Sex: Male

DRUGS (12)
  1. DAKLINZA [Suspect]
     Active Substance: DACLATASVIR
     Indication: CHRONIC HEPATITIS C
     Dosage: UNK
     Route: 065
     Dates: start: 2016
  2. DAKLINZA [Suspect]
     Active Substance: DACLATASVIR
     Dosage: UNK
     Route: 065
     Dates: start: 2017
  3. PREDNISOLONE. [Concomitant]
     Active Substance: PREDNISOLONE
  4. BACTRIM [Concomitant]
     Active Substance: SULFAMETHOXAZOLE\TRIMETHOPRIM
  5. PANTOPRAZOLE [Concomitant]
     Active Substance: PANTOPRAZOLE
  6. SOFOSBUVIR [Suspect]
     Active Substance: SOFOSBUVIR
     Dosage: UNK
     Route: 065
     Dates: start: 2017
  7. MMF [Concomitant]
     Active Substance: MYCOPHENOLATE MOFETIL
  8. SOFOSBUVIR [Suspect]
     Active Substance: SOFOSBUVIR
     Indication: CHRONIC HEPATITIS C
     Dosage: UNK
     Route: 065
     Dates: start: 2016
  9. VALGANCICLOVIR. [Concomitant]
     Active Substance: VALGANCICLOVIR
  10. TACROLIMUS. [Concomitant]
     Active Substance: TACROLIMUS
  11. MAGMIN [Concomitant]
     Active Substance: MAGNESIUM ASPARTATE
  12. DESVENLAFAXINE. [Concomitant]
     Active Substance: DESVENLAFAXINE

REACTIONS (3)
  - Liver transplant [Unknown]
  - Treatment failure [Not Recovered/Not Resolved]
  - Treatment failure [Not Recovered/Not Resolved]

NARRATIVE: CASE EVENT DATE: 2016
